FAERS Safety Report 12859290 (Version 4)
Quarter: 2017Q2

REPORT INFORMATION
  Report Type: Report from Study
  Country: US (occurrence: US)
  Receive Date: 20161018
  Receipt Date: 20170413
  Transmission Date: 20170830
  Serious: Yes (Hospitalization, Other)
  Sender: FDA-Public Use
  Company Number: US-GILEAD-2016-0238843

PATIENT
  Age: 46 Year
  Sex: Female

DRUGS (8)
  1. NELARABINE [Concomitant]
     Active Substance: NELARABINE
  2. SILDENAFIL. [Concomitant]
     Active Substance: SILDENAFIL
  3. VINCRISTINE SULFATE. [Concomitant]
     Active Substance: VINCRISTINE SULFATE
  4. AMBRISENTAN [Suspect]
     Active Substance: AMBRISENTAN
     Indication: PULMONARY HYPERTENSION
     Dosage: 10 MG, QD
     Route: 065
     Dates: start: 20091127
  5. AMBRISENTAN [Suspect]
     Active Substance: AMBRISENTAN
     Indication: CONNECTIVE TISSUE DISORDER
  6. AMBRISENTAN [Suspect]
     Active Substance: AMBRISENTAN
     Indication: HEART DISEASE CONGENITAL
  7. DOXORUBICIN [Concomitant]
     Active Substance: DOXORUBICIN
  8. DEXAMETHASONE. [Concomitant]
     Active Substance: DEXAMETHASONE

REACTIONS (10)
  - Lymphoma [Unknown]
  - Drug dose omission [Recovered/Resolved]
  - Diarrhoea [Unknown]
  - Vomiting [Unknown]
  - Pyrexia [Unknown]
  - Neutrophil count increased [Unknown]
  - Viral upper respiratory tract infection [Unknown]
  - Brain natriuretic peptide increased [Unknown]
  - Malaise [Not Recovered/Not Resolved]
  - Lymphocyte count decreased [Unknown]

NARRATIVE: CASE EVENT DATE: 20161008
